FAERS Safety Report 8893964 (Version 1)
Quarter: 2012Q4

REPORT INFORMATION
  Report Type: 
  Country: CA (occurrence: CA)
  Receive Date: 20121107
  Receipt Date: 20121107
  Transmission Date: 20130627
  Serious: Yes (Other)
  Sender: FDA-Public Use
  Company Number: PHHO2005CA05849

PATIENT
  Sex: Male

DRUGS (4)
  1. SANDOSTATIN LAR (PATIENT BASIS) [Suspect]
     Indication: ALBRIGHT^S DISEASE
     Dosage: 5 mg every 4 weeks
     Route: 030
     Dates: start: 20041217
  2. SANDOSTATIN LAR (PATIENT BASIS) [Suspect]
     Dosage: 15 mg every month
     Route: 030
     Dates: start: 200608
  3. ATIVAN [Concomitant]
  4. ADVIL CHILDRENS [Concomitant]

REACTIONS (21)
  - Chest pain [Not Recovered/Not Resolved]
  - Chest discomfort [Unknown]
  - Deafness [Unknown]
  - Dyspnoea [Recovered/Resolved]
  - Headache [Not Recovered/Not Resolved]
  - Feeling abnormal [Unknown]
  - Anxiety [Unknown]
  - Insomnia [Unknown]
  - Musculoskeletal discomfort [Unknown]
  - Mood swings [Unknown]
  - Oral disorder [Unknown]
  - Cafe au lait spots [Unknown]
  - Gingival disorder [Unknown]
  - Arthralgia [Unknown]
  - Abdominal discomfort [Unknown]
  - Fatigue [Not Recovered/Not Resolved]
  - Diarrhoea [Unknown]
  - Abdominal pain [Unknown]
  - Nausea [Unknown]
  - Heart rate increased [Unknown]
  - Asthenia [Unknown]
